FAERS Safety Report 16842379 (Version 1)
Quarter: 2019Q3

REPORT INFORMATION
  Report Type: Spontaneous
  Country: GB (occurrence: GB)
  Receive Date: 20190924
  Receipt Date: 20190924
  Transmission Date: 20191005
  Serious: Yes (Death)
  Sender: FDA-Public Use
  Company Number: GB-009507513-1909GBR007164

PATIENT
  Age: 83 Year
  Sex: Male
  Weight: 65.9 kg

DRUGS (3)
  1. PEMBROLIZUMAB. [Suspect]
     Active Substance: PEMBROLIZUMAB
     Indication: LUNG ADENOCARCINOMA
     Dosage: UNK
     Route: 042
     Dates: start: 20190326, end: 20190806
  2. CARBOPLATIN. [Concomitant]
     Active Substance: CARBOPLATIN
     Indication: LUNG ADENOCARCINOMA
     Dosage: UNK
     Dates: start: 20190326
  3. PEMETREXED DISODIUM [Concomitant]
     Active Substance: PEMETREXED DISODIUM
     Indication: LUNG ADENOCARCINOMA
     Dosage: UNK
     Dates: start: 20190326

REACTIONS (10)
  - Pyrexia [Recovered/Resolved]
  - Dyschezia [Unknown]
  - Chest pain [Unknown]
  - Constipation [Recovered/Resolved]
  - Dysuria [Unknown]
  - Abdominal pain [Unknown]
  - Oxygen saturation decreased [Unknown]
  - Suprapubic pain [Unknown]
  - Respiratory distress [Unknown]
  - Interstitial lung disease [Fatal]

NARRATIVE: CASE EVENT DATE: 20190818
